FAERS Safety Report 7878921-7 (Version None)
Quarter: 2011Q4

REPORT INFORMATION
  Report Type: 
  Country: None (occurrence: None)
  Receive Date: 20111021
  Receipt Date: 20110721
  Transmission Date: 20120403
  Serious: Yes (Other)
  Sender: FDA-Public Use
  Company Number: ALL1-2011-02412

PATIENT
  Age: 46 Year
  Sex: Male
  Weight: 101.1 kg

DRUGS (3)
  1. VYVANSE [Suspect]
     Indication: ATTENTION DEFICIT/HYPERACTIVITY DISORDER
     Dosage: 30 MG, 3X/DAY:TID, ORAL,   40 MG, 2X/DAY:BID, ORAL
     Route: 048
     Dates: start: 20100801, end: 20100901
  2. VYVANSE [Suspect]
     Indication: ATTENTION DEFICIT/HYPERACTIVITY DISORDER
     Dosage: 30 MG, 3X/DAY:TID, ORAL,   40 MG, 2X/DAY:BID, ORAL
     Route: 048
     Dates: end: 20100801
  3. VYVANSE [Suspect]
     Indication: ATTENTION DEFICIT/HYPERACTIVITY DISORDER
     Dosage: 30 MG, 3X/DAY:TID, ORAL,   40 MG, 2X/DAY:BID, ORAL
     Route: 048
     Dates: start: 20100901

REACTIONS (4)
  - TREATMENT NONCOMPLIANCE [None]
  - DEPRESSION [None]
  - OVERDOSE [None]
  - INAPPROPRIATE SCHEDULE OF DRUG ADMINISTRATION [None]
